FAERS Safety Report 17939909 (Version 1)
Quarter: 2020Q2

REPORT INFORMATION
  Report Type: Spontaneous
  Country: TR (occurrence: TR)
  Receive Date: 20200625
  Receipt Date: 20200625
  Transmission Date: 20200714
  Serious: Yes (Hospitalization, Other)
  Sender: FDA-Public Use
  Company Number: TR-SA-2020SA156594

PATIENT

DRUGS (5)
  1. FINGOLIMOD. [Suspect]
     Active Substance: FINGOLIMOD
     Indication: MULTIPLE SCLEROSIS
     Dosage: UNK
     Dates: start: 201207
  2. ACYCLOVIR [ACICLOVIR] [Concomitant]
     Active Substance: ACYCLOVIR
     Indication: JC VIRUS INFECTION
     Dosage: UNK
     Dates: start: 2018, end: 2018
  3. TERIFLUNOMIDE. [Suspect]
     Active Substance: TERIFLUNOMIDE
     Indication: MULTIPLE SCLEROSIS
     Dosage: UNK
     Dates: start: 201701
  4. INTERFERON BETA-1A [Suspect]
     Active Substance: INTERFERON BETA-1A
     Indication: MULTIPLE SCLEROSIS
     Dosage: UNK
     Dates: start: 200902, end: 201207
  5. NATALIZUMAB [Suspect]
     Active Substance: NATALIZUMAB
     Indication: MULTIPLE SCLEROSIS
     Dosage: UNK
     Dates: start: 201306, end: 201701

REACTIONS (12)
  - Sleep disorder [Recovered/Resolved]
  - Agitation [Recovered/Resolved]
  - Encephalitis autoimmune [Recovered/Resolved]
  - Hallucination, auditory [Recovered/Resolved]
  - Status epilepticus [Recovered/Resolved]
  - Confusional state [Recovered/Resolved]
  - Memory impairment [Recovered/Resolved]
  - Autonomic nervous system imbalance [Recovered/Resolved]
  - Optic neuritis [Recovered/Resolved]
  - Sinus node dysfunction [Recovered/Resolved]
  - Hallucination, visual [Recovered/Resolved]
  - Generalised tonic-clonic seizure [Recovered/Resolved]

NARRATIVE: CASE EVENT DATE: 201704
